FAERS Safety Report 22091794 (Version 2)
Quarter: 2023Q1

REPORT INFORMATION
  Report Type: Spontaneous
  Country: VN (occurrence: VN)
  Receive Date: 20230314
  Receipt Date: 20230316
  Transmission Date: 20230418
  Serious: Yes (Hospitalization, Other)
  Sender: FDA-Public Use
  Company Number: VN-002147023-NVSC2023VN054656

PATIENT
  Sex: Female

DRUGS (11)
  1. ANASTROZOLE [Suspect]
     Active Substance: ANASTROZOLE
     Indication: Breast cancer
     Dosage: 1 MG, QD
     Route: 065
     Dates: start: 201808, end: 202104
  2. RIBOCICLIB [Suspect]
     Active Substance: RIBOCICLIB
     Indication: Breast cancer
     Dosage: UNK
     Route: 065
     Dates: start: 20220504, end: 20220727
  3. RIBOCICLIB [Suspect]
     Active Substance: RIBOCICLIB
     Indication: Metastases to lung
     Dosage: UNK
     Route: 065
     Dates: start: 20220810
  4. RIBOCICLIB [Suspect]
     Active Substance: RIBOCICLIB
     Indication: Metastases to bone
  5. RIBOCICLIB [Suspect]
     Active Substance: RIBOCICLIB
     Indication: Metastases to lymph nodes
  6. RIBOCICLIB [Suspect]
     Active Substance: RIBOCICLIB
     Indication: Metastases to pleura
  7. LETROZOLE [Suspect]
     Active Substance: LETROZOLE
     Indication: Breast cancer
     Dosage: UNK
     Route: 065
     Dates: start: 20220504
  8. LETROZOLE [Suspect]
     Active Substance: LETROZOLE
     Indication: Metastases to lung
  9. LETROZOLE [Suspect]
     Active Substance: LETROZOLE
     Indication: Metastases to pleura
  10. LETROZOLE [Suspect]
     Active Substance: LETROZOLE
     Indication: Metastases to bone
  11. LETROZOLE [Suspect]
     Active Substance: LETROZOLE
     Indication: Metastases to lymph nodes

REACTIONS (13)
  - Chest pain [Recovered/Resolved]
  - Cough [Recovered/Resolved]
  - Neutropenia [Recovered/Resolved]
  - Hepatitis B [Unknown]
  - Breast cancer [Unknown]
  - Metastases to pleura [Unknown]
  - Metastases to lung [Unknown]
  - Metastases to lymph nodes [Unknown]
  - Metastases to bone [Unknown]
  - Malignant neoplasm progression [Unknown]
  - Hepatic steatosis [Unknown]
  - Hepatic cyst [Unknown]
  - Pulmonary mass [Unknown]

NARRATIVE: CASE EVENT DATE: 20220727
